FAERS Safety Report 25773018 (Version 1)
Quarter: 2025Q3

REPORT INFORMATION
  Report Type: Other
  Country: PE (occurrence: PE)
  Receive Date: 20250908
  Receipt Date: 20250908
  Transmission Date: 20251020
  Serious: Yes (Death, Hospitalization, Other)
  Sender: ANI
  Company Number: PE-ANIPHARMA-030478

PATIENT
  Age: 68 Year
  Sex: Male

DRUGS (3)
  1. CLOBETASOL [Suspect]
     Active Substance: CLOBETASOL
     Indication: Vitiligo
  2. TRIAMCINOLONE [Concomitant]
     Active Substance: TRIAMCINOLONE
     Indication: Vitiligo
  3. TACROLIMUS [Concomitant]
     Active Substance: TACROLIMUS
     Indication: Vitiligo

REACTIONS (7)
  - Disseminated paracoccidioidomycosis [Unknown]
  - Human T-cell lymphotropic virus type I infection [Unknown]
  - Metastatic malignant melanoma [Unknown]
  - Multiple organ dysfunction syndrome [Fatal]
  - Staphylococcal infection [Unknown]
  - Klebsiella infection [Unknown]
  - Treatment noncompliance [Unknown]
